FAERS Safety Report 18745065 (Version 3)
Quarter: 2021Q1

REPORT INFORMATION
  Report Type: Report from Study
  Country: US (occurrence: US)
  Receive Date: 20210115
  Receipt Date: 20210212
  Transmission Date: 20210419
  Serious: Yes (Death, Hospitalization, Other)
  Sender: FDA-Public Use
  Company Number: US-ACADIA PHARMACEUTICALS INC.-ACA-2020-PIM-004187

PATIENT
  Age: 83 Year
  Sex: Male
  Weight: 80 kg

DRUGS (7)
  1. NUPLAZID [Suspect]
     Active Substance: PIMAVANSERIN TARTRATE
     Indication: DELUSION
  2. NUPLAZID [Suspect]
     Active Substance: PIMAVANSERIN TARTRATE
     Indication: PARKINSON^S DISEASE PSYCHOSIS
     Dosage: 34 MILLIGRAM, QD, EVERY EVENING
     Route: 065
     Dates: start: 2019
  3. INSULIN [Concomitant]
     Active Substance: INSULIN NOS
  4. SEROQUEL [Concomitant]
     Active Substance: QUETIAPINE FUMARATE
     Dosage: 100 MILLIGRAM, QD, AT NIGHT
  5. ARICEPT [Concomitant]
     Active Substance: DONEPEZIL HYDROCHLORIDE
     Dosage: 5 MILLIGRAM, QD, IN MORNING
  6. NUPLAZID [Suspect]
     Active Substance: PIMAVANSERIN TARTRATE
     Indication: HALLUCINATION
  7. NUPLAZID [Suspect]
     Active Substance: PIMAVANSERIN TARTRATE
     Indication: DEMENTIA WITH LEWY BODIES

REACTIONS (11)
  - COVID-19 pneumonia [Unknown]
  - Renal impairment [Recovering/Resolving]
  - Refusal of treatment by patient [Unknown]
  - Fall [Unknown]
  - Hallucination, visual [Not Recovered/Not Resolved]
  - Weight decreased [Unknown]
  - Disorientation [Unknown]
  - Myocardial infarction [Fatal]
  - Feeling abnormal [Not Recovered/Not Resolved]
  - Food refusal [Unknown]
  - Disorientation [Not Recovered/Not Resolved]

NARRATIVE: CASE EVENT DATE: 202012
